FAERS Safety Report 16774866 (Version 1)
Quarter: 2019Q3

REPORT INFORMATION
  Report Type: Spontaneous
  Country: FR (occurrence: FR)
  Receive Date: 20190905
  Receipt Date: 20190905
  Transmission Date: 20191005
  Serious: Yes (Other)
  Sender: FDA-Public Use
  Company Number: FR-TEVA-2019-FR-1101409

PATIENT
  Age: 26 Year
  Sex: Male

DRUGS (3)
  1. DALACINE 300 MG, G?LULE [Suspect]
     Active Substance: CLINDAMYCIN PHOSPHATE
     Indication: ARTHRITIS BACTERIAL
     Dosage: 2700 MG  1 DAYS
     Route: 048
     Dates: start: 20190730, end: 20190807
  2. OMNIPAQUE [Concomitant]
     Active Substance: IOHEXOL
  3. OFLOXACINE [Suspect]
     Active Substance: OFLOXACIN
     Indication: ARTHRITIS BACTERIAL
     Dosage: 800 MG 1 DAYS
     Route: 048
     Dates: start: 20190802

REACTIONS (1)
  - Rash maculo-papular [Recovered/Resolved]

NARRATIVE: CASE EVENT DATE: 20190806
